FAERS Safety Report 8136454-7 (Version None)
Quarter: 2012Q1

REPORT INFORMATION
  Report Type: 
  Country: None (occurrence: None)
  Receive Date: 20120214
  Receipt Date: 20120201
  Transmission Date: 20120608
  Serious: Yes (Other)
  Sender: FDA-Public Use
  Company Number: CHPA2012US002353

PATIENT
  Sex: Female

DRUGS (2)
  1. DRUG THERAPY NOS [Concomitant]
  2. EXCEDRIN (MIGRAINE) [Suspect]
     Indication: NERVE INJURY
     Dosage: 2 DF, UNK
     Route: 048
     Dates: end: 20120109

REACTIONS (8)
  - ERYTHEMA [None]
  - BURNING SENSATION [None]
  - NASAL DISCOMFORT [None]
  - HEADACHE [None]
  - MALAISE [None]
  - OFF LABEL USE [None]
  - DRUG DEPENDENCE [None]
  - DRY SKIN [None]
